FAERS Safety Report 25985683 (Version 1)
Quarter: 2025Q4

REPORT INFORMATION
  Report Type: Spontaneous
  Country: EU (occurrence: EU)
  Receive Date: 20251031
  Receipt Date: 20251031
  Transmission Date: 20260118
  Serious: Yes (Death, Hospitalization, Other)
  Sender: MYLAN
  Company Number: None

PATIENT
  Age: 73 Year
  Sex: Male

DRUGS (21)
  1. PREDNISONE [4]
     Active Substance: PREDNISONE
     Indication: Immune-mediated lung disease
     Dosage: 5 MILLIGRAM, QD
     Dates: end: 20250915
  2. NIVOLUMAB [Suspect]
     Active Substance: NIVOLUMAB
     Indication: Clear cell renal cell carcinoma
     Dosage: 240 MILLIGRAM (FREQUENCY - 15 DAYS)
     Dates: start: 20220729, end: 20221005
  3. NIVOLUMAB [Suspect]
     Active Substance: NIVOLUMAB
     Dosage: 240 MILLIGRAM, (FREQUENCY - 30 DAYS)
     Dates: start: 20221027, end: 20221222
  4. NIVOLUMAB [Suspect]
     Active Substance: NIVOLUMAB
     Dosage: 240 MILLIGRAM (FREQUENCY 30 DAYS)
     Dates: start: 20230120, end: 20230317
  5. NIVOLUMAB [Suspect]
     Active Substance: NIVOLUMAB
     Dosage: 240 MILLIGRAM (FREQUENCY - 30 DAYS)
     Dates: start: 20230417, end: 20250415
  6. AXITINIB [Concomitant]
     Active Substance: AXITINIB
     Indication: Clear cell renal cell carcinoma
     Dosage: 6 MILLIGRAM, QD, 3 MG MORNING AND EVENING
     Dates: start: 20250911, end: 20250914
  7. ELIQUIS [Concomitant]
     Active Substance: APIXABAN
     Indication: Atrial fibrillation
     Dosage: 5 MILLIGRAM, QD, 2.5 MG MORNING AND EVENING
  8. DIGOXIN [Concomitant]
     Active Substance: DIGOXIN
     Indication: Atrial fibrillation
     Dosage: 0.13 MILLIGRAM, QD
     Dates: end: 20250916
  9. DAPAGLIFLOZIN [Concomitant]
     Active Substance: DAPAGLIFLOZIN
     Indication: Cardiac failure
     Dosage: 10 MILLIGRAM, QD
  10. FUROSEMIDE [Concomitant]
     Active Substance: FUROSEMIDE
     Indication: Cardiac failure
     Dosage: 20 MILLIGRAM, QD
  11. IRBESARTAN [Concomitant]
     Active Substance: IRBESARTAN
     Indication: Cardiac failure
     Dosage: 300 MILLIGRAM, QD
  12. IRBESARTAN [Concomitant]
     Active Substance: IRBESARTAN
     Indication: Hypertension
  13. NEBIVOLOL [Concomitant]
     Active Substance: NEBIVOLOL
     Indication: Cardiac failure
     Dosage: 2.5 MILLIGRAM, QD
  14. NEBIVOLOL [Concomitant]
     Active Substance: NEBIVOLOL
     Indication: Hypertension
  15. EPLERENONE [Concomitant]
     Active Substance: EPLERENONE
     Indication: Cardiac failure
     Dosage: 25 MILLIGRAM, QD
  16. EPLERENONE [Concomitant]
     Active Substance: EPLERENONE
     Indication: Hypertension
  17. EZETIMIBE\ROSUVASTATIN [Concomitant]
     Active Substance: EZETIMIBE\ROSUVASTATIN
     Indication: Dyslipidaemia
     Dosage: 1 DOSAGE FORM, QD, 10 MG EZETIMIBE AND 10 MG ROSUVASTATIN
  18. METFORMIN HYDROCHLORIDE [Concomitant]
     Active Substance: METFORMIN HYDROCHLORIDE
     Indication: Diabetes mellitus
     Dosage: 1000 MILLIGRAM, QD, 500 MG MORNING AND EVENING
  19. LANTUS [Concomitant]
     Active Substance: INSULIN GLARGINE
     Indication: Diabetes mellitus
     Dosage: 20 INTERNATIONAL UNIT, QD
  20. HYDROCORTISONE [Concomitant]
     Active Substance: HYDROCORTISONE
     Indication: Immune-mediated adrenal insufficiency
     Dosage: 30 MILLIGRAM, QD 20 MG MORNING AND 10 MG MIDDAY
  21. ALPRAZOLAM [Concomitant]
     Active Substance: ALPRAZOLAM
     Indication: Anxiety
     Dosage: 0.13 MILLIGRAM, QD

REACTIONS (2)
  - Immune-mediated hepatitis [Fatal]
  - Immune-mediated lung disease [Recovered/Resolved]

NARRATIVE: CASE EVENT DATE: 20250520
